FAERS Safety Report 4450474-5 (Version None)
Quarter: 2004Q3

REPORT INFORMATION
  Report Type: 
  Country: None (occurrence: None)
  Receive Date: 20040914
  Receipt Date: 20040816
  Transmission Date: 20050211
  Serious: Yes (Life-Threatening, Hospitalization)
  Sender: FDA-Public Use
  Company Number: 000#8#2004-00470

PATIENT
  Age: 40 Year
  Sex: Male

DRUGS (1)
  1. ALPROSTADIL [Suspect]
     Indication: ERECTILE DYSFUNCTION
     Dosage: 1.10 MICROGRAM SINGLE DOSE, INTRAVENOUS
     Route: 042

REACTIONS (9)
  - BLOOD GLUCOSE INCREASED [None]
  - ERYTHEMA [None]
  - PENILE PAIN [None]
  - PENILE SWELLING [None]
  - PENIS DISORDER [None]
  - PEYRONIE'S DISEASE [None]
  - STREPTOCOCCAL SEPSIS [None]
  - TACHYCARDIA [None]
  - TENDERNESS [None]
